FAERS Safety Report 5865765-0 (Version None)
Quarter: 2008Q3

REPORT INFORMATION
  Report Type: 
  Country: None (occurrence: None)
  Receive Date: 20080829
  Receipt Date: 20080822
  Transmission Date: 20090109
  Serious: Yes (Other)
  Sender: FDA-Public Use
  Company Number: PHHY2008GR10854

PATIENT
  Age: 49 Year
  Sex: Male

DRUGS (3)
  1. LOPRESSOR [Suspect]
     Dosage: 25 MG, QD
     Route: 048
     Dates: start: 20070101, end: 20080401
  2. XATRAL [Suspect]
     Dosage: 2.5 MG, QD
     Route: 048
     Dates: start: 20080301, end: 20080401
  3. MAGURAN [Suspect]
     Dosage: 4 MG, QD
     Route: 048
     Dates: start: 20080201, end: 20080301

REACTIONS (2)
  - BALANITIS [None]
  - PRURITUS GENITAL [None]
